FAERS Safety Report 10581271 (Version 1)
Quarter: 2014Q4

REPORT INFORMATION
  Report Type: Spontaneous
  Country: US (occurrence: None)
  Receive Date: 20141110
  Receipt Date: 20141110
  Transmission Date: 20150529
  Serious: Yes (Other)
  Sender: FDA-Public Use
  Company Number: FK201404906

PATIENT

DRUGS (1)
  1. METHOTREXATE FOR INJECTION, USP ( METHOTREXATE SODIUM) ( METHOTREXATE SODIUM) [Suspect]
     Active Substance: METHOTREXATE
     Indication: CENTRAL NERVOUS SYSTEM LYMPHOMA
     Route: 040

REACTIONS (4)
  - Acute kidney injury [None]
  - Drug level increased [None]
  - Toxicity to various agents [None]
  - Ischaemic stroke [None]
